FAERS Safety Report 5223399-5 (Version None)
Quarter: 2007Q1

REPORT INFORMATION
  Report Type: 
  Country: None (occurrence: None)
  Receive Date: 20061201
  Receipt Date: 20060719
  Transmission Date: 20070707
  Serious: No
  Sender: FDA-Public Use
  Company Number: 2006PV016371

PATIENT
  Age: 41 Year
  Sex: Female
  Weight: 136.0791 kg

DRUGS (6)
  1. BYETTA [Suspect]
     Indication: DIABETES MELLITUS NON-INSULIN-DEPENDENT
     Dosage: 5 MCG;BID;SC : 10 MCG;BID;SC
     Route: 058
     Dates: start: 20060622, end: 20060716
  2. BYETTA [Suspect]
     Indication: DIABETES MELLITUS NON-INSULIN-DEPENDENT
     Dosage: 5 MCG;BID;SC : 10 MCG;BID;SC
     Route: 058
     Dates: start: 20060717
  3. METFORMIN HCL [Concomitant]
  4. NOVOLOG [Concomitant]
  5. GLYBURIDE [Concomitant]
  6. NOVOLOG MIX 70/30 [Concomitant]

REACTIONS (3)
  - BLOOD GLUCOSE INCREASED [None]
  - DRUG INEFFECTIVE [None]
  - WEIGHT DECREASED [None]
